FAERS Safety Report 5848415-9 (Version None)
Quarter: 2008Q3

REPORT INFORMATION
  Report Type: 
  Country: None (occurrence: None)
  Receive Date: 20080818
  Receipt Date: 20080813
  Transmission Date: 20090109
  Serious: Yes (Death)
  Sender: FDA-Public Use
  Company Number: US-GILEAD-2008-0017762

PATIENT
  Sex: Female
  Weight: 75.364 kg

DRUGS (15)
  1. LETAIRIS [Suspect]
     Indication: PULMONARY ARTERIAL HYPERTENSION
     Route: 048
     Dates: start: 20080802
  2. FOLIC ACID [Concomitant]
     Dosage: AS DIRECTED
     Route: 048
  3. LORAZEPAM [Concomitant]
     Dosage: AS DIRECTED
     Route: 048
  4. TRAZODONE HCL [Concomitant]
     Dosage: AS DIRECTED
     Route: 048
  5. SINGULAIR [Concomitant]
     Dosage: AS DIRECTED
     Route: 048
  6. LASIX [Concomitant]
     Dosage: AS DIRECTED
     Route: 048
  7. METOPROLOL TARTRATE [Concomitant]
     Dosage: AS DIRECTED
     Route: 048
  8. LACTULOSE [Concomitant]
     Dosage: AS DIRECTED
     Route: 048
  9. ALBUTEROL [Concomitant]
     Dosage: AS DIRECTED
     Route: 055
  10. COUMADIN [Concomitant]
     Dosage: AS DIRECTED
     Route: 048
  11. SYMBICORT [Concomitant]
     Dosage: AS DIRECTED
     Route: 055
  12. NEXIUM [Concomitant]
     Dosage: AS DIRECTED
     Route: 048
  13. FENTANYL-25 [Concomitant]
     Dosage: AS DIRECTED
     Route: 061
  14. LEXAPRO [Concomitant]
     Dosage: AS DIRECTED
     Route: 048
  15. POTASSIUM CHLORIDE [Concomitant]
     Dosage: AS DIRECTED
     Route: 048

REACTIONS (1)
  - DEATH [None]
